FAERS Safety Report 6273409-1 (Version None)
Quarter: 2009Q3

REPORT INFORMATION
  Report Type: 
  Country: None (occurrence: None)
  Receive Date: 20090720
  Receipt Date: 20090706
  Transmission Date: 20100115
  Serious: Yes (Hospitalization)
  Sender: FDA-Public Use
  Company Number: PHHY2009FR27712

PATIENT
  Age: 30 Year
  Sex: Male
  Weight: 50 kg

DRUGS (1)
  1. LAMISIL [Suspect]
     Indication: SCEDOSPORIUM INFECTION
     Dosage: 1 DF, QD

REACTIONS (3)
  - DRUG INEFFECTIVE [None]
  - INTERVERTEBRAL DISCITIS [None]
  - SCEDOSPORIUM INFECTION [None]
